FAERS Safety Report 9297119 (Version 1)
Quarter: 2013Q2

REPORT INFORMATION
  Report Type: Spontaneous
  Country: GB (occurrence: GB)
  Receive Date: 20130520
  Receipt Date: 20130520
  Transmission Date: 20140414
  Serious: Yes (Hospitalization)
  Sender: FDA-Public Use
  Company Number: GB-AMGEN-GBRSP2013033430

PATIENT
  Sex: Male

DRUGS (5)
  1. MIMPARA [Suspect]
     Indication: HYPERPARATHYROIDISM SECONDARY
     Dosage: UNK
     Route: 048
  2. ASPIRIN [Concomitant]
  3. KETOVITE                           /00660901/ [Concomitant]
  4. LANTHANUM CARBONATE [Concomitant]
  5. ALFACALCIDOL [Concomitant]

REACTIONS (3)
  - Affective disorder [Not Recovered/Not Resolved]
  - Electrocardiogram QT prolonged [Unknown]
  - Hypocalcaemia [Unknown]
